FAERS Safety Report 14414031 (Version 6)
Quarter: 2018Q1

REPORT INFORMATION
  Report Type: Spontaneous
  Country: IT (occurrence: IT)
  Receive Date: 20180119
  Receipt Date: 20180328
  Transmission Date: 20180509
  Serious: Yes (Other)
  Sender: FDA-Public Use
  Company Number: IT-ROCHE-2055957

PATIENT
  Age: 70 Year
  Sex: Male

DRUGS (12)
  1. FLUOROURACIL. [Suspect]
     Active Substance: FLUOROURACIL
     Dosage: 46 HOURS CONTINUOUS INFUSION
     Route: 041
     Dates: start: 200908, end: 200911
  2. OXALIPLATIN. [Suspect]
     Active Substance: OXALIPLATIN
     Route: 065
     Dates: start: 200908, end: 200911
  3. BEVACIZUMAB. [Suspect]
     Active Substance: BEVACIZUMAB
     Indication: ADENOCARCINOMA OF COLON
     Dosage: ON D1 OF THE 3-WEEKLY CYCLE, FOR 7 CYCLES
     Route: 065
     Dates: start: 201204, end: 201312
  4. FLUOROURACIL. [Suspect]
     Active Substance: FLUOROURACIL
     Indication: ADENOCARCINOMA OF COLON
     Dosage: D1:400/MG/M^2, THEN 2400 MG/ME2
     Route: 040
     Dates: start: 201410, end: 201501
  5. PANITUMUMAB [Suspect]
     Active Substance: PANITUMUMAB
     Indication: ADENOCARCINOMA OF COLON
     Dosage: ON DAY 1
     Route: 065
     Dates: start: 201410
  6. PEGYLATED LIPOSOMAL IRINOTECAN [Suspect]
     Active Substance: IRINOTECAN HYDROCHLORIDE
     Indication: ADENOCARCINOMA OF COLON
     Dosage: ON DAY 1?360 MG/MG2 ONCE WEEK
     Route: 065
     Dates: start: 201410, end: 201501
  7. PANITUMUMAB [Suspect]
     Active Substance: PANITUMUMAB
     Route: 065
  8. OXALIPLATIN. [Suspect]
     Active Substance: OXALIPLATIN
     Indication: ADENOCARCINOMA OF COLON
     Dosage: ON DAY 1, FOR 7 CYCLES
     Route: 065
     Dates: start: 201204
  9. CAPECITABINE. [Suspect]
     Active Substance: CAPECITABINE
     Indication: ADENOCARCINOMA OF COLON
     Dosage: ON D1-14 Q3W, FOR 7 CYCLES?REDUCED
     Route: 065
     Dates: start: 201204, end: 201312
  10. PANITUMUMAB [Suspect]
     Active Substance: PANITUMUMAB
     Dosage: 60 % OF ORIGINAL DOSE
     Route: 065
     Dates: start: 201506
  11. LEUCOVORIN. [Suspect]
     Active Substance: LEUCOVORIN
     Indication: ADENOCARCINOMA OF COLON
     Dosage: AS A 2-H INFUSION ON DAY 1
     Route: 065
     Dates: start: 201410, end: 201501
  12. LEUCOVORIN. [Suspect]
     Active Substance: LEUCOVORIN
     Route: 065
     Dates: start: 20090801, end: 20091101

REACTIONS (6)
  - Neutropenia [Unknown]
  - Asthenia [Unknown]
  - Palmar-plantar erythrodysaesthesia syndrome [Unknown]
  - Skin toxicity [Unknown]
  - Diarrhoea [Unknown]
  - Neuropathy peripheral [Unknown]

NARRATIVE: CASE EVENT DATE: 2015
